FAERS Safety Report 8308800-2 (Version None)
Quarter: 2012Q2

REPORT INFORMATION
  Report Type: 
  Country: None (occurrence: None)
  Receive Date: 20120424
  Receipt Date: 20101118
  Transmission Date: 20120825
  Serious: Yes (Other)
  Sender: FDA-Public Use
  Company Number: US-TEVA-2010006037

PATIENT
  Sex: Male

DRUGS (4)
  1. RITALIN [Concomitant]
     Indication: SLEEP APNOEA SYNDROME
     Route: 048
  2. PROVIGIL [Suspect]
     Indication: SLEEP APNOEA SYNDROME
     Dosage: 400 MILLIGRAM;
     Route: 048
  3. RITALIN [Concomitant]
     Indication: HYPERSOMNIA
  4. PROVIGIL [Suspect]
     Indication: HYPERSOMNIA

REACTIONS (2)
  - DRUG INEFFECTIVE [None]
  - SUICIDAL IDEATION [None]
